FAERS Safety Report 14412537 (Version 1)
Quarter: 2018Q1

REPORT INFORMATION
  Report Type: Spontaneous
  Country: US (occurrence: US)
  Receive Date: 20180118
  Receipt Date: 20180118
  Transmission Date: 20180509
  Serious: No
  Sender: FDA-Public Use
  Company Number: None

PATIENT
  Age: 82 Year
  Sex: Male

DRUGS (2)
  1. ZOSYN [Suspect]
     Active Substance: PIPERACILLIN SODIUM\TAZOBACTAM SODIUM
     Dosage: ?          OTHER FREQUENCY:Q8H EXTENDED INFUS;?
     Route: 041
  2. VANCOMYCIN [Suspect]
     Active Substance: VANCOMYCIN
     Route: 041

REACTIONS (2)
  - Liquid product physical issue [None]
  - Therapy cessation [None]

NARRATIVE: CASE EVENT DATE: 20180116
